FAERS Safety Report 25046876 (Version 2)
Quarter: 2025Q1

REPORT INFORMATION
  Report Type: Spontaneous
  Country: US (occurrence: US)
  Receive Date: 20250306
  Receipt Date: 20250319
  Transmission Date: 20250409
  Serious: Yes (Hospitalization)
  Sender: TEVA
  Company Number: US-TEVA-VS-3305107

PATIENT
  Age: 60 Year
  Sex: Male

DRUGS (5)
  1. METHOTREXATE [Suspect]
     Active Substance: METHOTREXATE
     Indication: Acute disseminated encephalomyelitis
     Route: 037
  2. CLOBETASOL [Suspect]
     Active Substance: CLOBETASOL
     Indication: Epidermal necrosis
     Dosage: 0.05%
     Route: 061
  3. VENETOCLAX [Suspect]
     Active Substance: VENETOCLAX
     Indication: Acute myeloid leukaemia
     Route: 042
  4. CYTARABINE [Concomitant]
     Active Substance: CYTARABINE
     Indication: Acute disseminated encephalomyelitis
     Route: 037
  5. AZACITIDINE [Suspect]
     Active Substance: AZACITIDINE
     Indication: Acute myeloid leukaemia
     Route: 042

REACTIONS (2)
  - Epidermal necrosis [Unknown]
  - Drug ineffective [Unknown]
